FAERS Safety Report 8459665-X (Version None)
Quarter: 2012Q2

REPORT INFORMATION
  Report Type: 
  Country: None (occurrence: None)
  Receive Date: 20120622
  Receipt Date: 20120615
  Transmission Date: 20120825
  Serious: Yes (Hospitalization)
  Sender: FDA-Public Use
  Company Number: ES-JNJFOC-20120305286

PATIENT
  Age: 49 Year
  Sex: Male
  Weight: 80 kg

DRUGS (3)
  1. CALCIUM CARBONATE [Concomitant]
  2. REMICADE [Suspect]
     Indication: CROHN'S DISEASE
     Route: 042
     Dates: start: 20110715, end: 20111202
  3. PREDNISONE TAB [Concomitant]
     Route: 048

REACTIONS (2)
  - PORTAL VEIN THROMBOSIS [None]
  - COLECTOMY TOTAL [None]
